FAERS Safety Report 8479924-4 (Version None)
Quarter: 2012Q2

REPORT INFORMATION
  Report Type: 
  Country: None (occurrence: None)
  Receive Date: 20120615
  Receipt Date: 20120608
  Transmission Date: 20120825
  Serious: Yes (Other)
  Sender: FDA-Public Use
  Company Number: DSA_57821_2012

PATIENT
  Sex: Male

DRUGS (2)
  1. XENAZINE [Suspect]
     Indication: PRODUCT USED FOR UNKNOWN INDICATION
     Dosage: (DF ORAL) (25 MG TID ORAL)
     Route: 048
     Dates: start: 20111101, end: 20120101
  2. AZITHROMYCIN [Suspect]
     Indication: INFECTION
     Dosage: (DF)
     Dates: start: 20120604

REACTIONS (2)
  - DRUG INTERACTION [None]
  - SOMNOLENCE [None]
